FAERS Safety Report 8393344 (Version 6)
Quarter: 2012Q4

REPORT INFORMATION
  Report Type: 
  Country: US (occurrence: US)
  Receive Date: 20120207
  Receipt Date: 20120919
  Transmission Date: 20130627
  Serious: Yes (Other)
  Sender: FDA-Public Use
  Company Number: US-PFIZER INC-2012030157

PATIENT
  Age: 19 Year
  Sex: Female

DRUGS (4)
  1. NORGESTREL,ETHINYL ESTRADIOL,PLACEBO [Suspect]
     Indication: CONTRACEPTION
     Dosage: 1 DF, daily
     Route: 048
     Dates: start: 20100714, end: 20120202
  2. OMEPRAZOLE [Concomitant]
     Dosage: UNK
  3. NYQUIL [Concomitant]
     Dosage: UNK
  4. RELPAX [Concomitant]
     Dosage: UNK

REACTIONS (3)
  - Product quality issue [Not Recovered/Not Resolved]
  - Drug ineffective [Not Recovered/Not Resolved]
  - Unintended pregnancy [Not Recovered/Not Resolved]
